FAERS Safety Report 9214865 (Version 5)
Quarter: 2014Q1

REPORT INFORMATION
  Report Type: Spontaneous
  Country: US (occurrence: US)
  Receive Date: 20130405
  Receipt Date: 20140318
  Transmission Date: 20141002
  Serious: Yes (Hospitalization)
  Sender: FDA-Public Use
  Company Number: US-GLAXOSMITHKLINE-A1017691A

PATIENT
  Sex: Male

DRUGS (2)
  1. LAMICTAL [Suspect]
     Indication: EPILEPSY
     Dosage: 100MG SEE DOSAGE TEXT
     Route: 048
  2. KEPPRA [Concomitant]

REACTIONS (7)
  - Grand mal convulsion [Recovered/Resolved]
  - Cyanosis [Recovered/Resolved]
  - Dry mouth [Unknown]
  - Dental caries [Unknown]
  - Prescribed overdose [Unknown]
  - Tooth loss [Unknown]
  - Denture wearer [Unknown]
